FAERS Safety Report 22699816 (Version 4)
Quarter: 2024Q1

REPORT INFORMATION
  Report Type: Report from Study
  Country: CA (occurrence: CA)
  Receive Date: 20230713
  Receipt Date: 20240329
  Transmission Date: 20240410
  Serious: Yes (Hospitalization)
  Sender: FDA-Public Use
  Company Number: CA-BAUSCH-BL-2020-037896

PATIENT
  Age: 49 Year
  Sex: Female

DRUGS (10)
  1. SILIQ [Interacting]
     Active Substance: BRODALUMAB
     Indication: Psoriasis
     Dosage: 210MG / 1.5ML, WEEKLY (WEEK 0-2)
     Route: 058
     Dates: start: 20201211, end: 202012
  2. SILIQ [Interacting]
     Active Substance: BRODALUMAB
     Dosage: 210MG / 1.5ML, Q2 WEEKS
     Route: 058
  3. SILIQ [Interacting]
     Active Substance: BRODALUMAB
     Dosage: 210MG/1.5ML, WEEKLY
     Route: 058
     Dates: start: 20230317
  4. XARELTO [Concomitant]
     Active Substance: RIVAROXABAN
     Indication: Product used for unknown indication
  5. PANTOPRAZOLE [Concomitant]
     Active Substance: PANTOPRAZOLE
     Indication: Product used for unknown indication
  6. AMITRIPTYLINE [Concomitant]
     Active Substance: AMITRIPTYLINE
     Indication: Product used for unknown indication
  7. TEVA - VENLAFAXINE [Concomitant]
     Indication: Product used for unknown indication
  8. HYDROCORTISONE [Concomitant]
     Active Substance: HYDROCORTISONE
     Indication: Product used for unknown indication
  9. BETADERM [Concomitant]
     Active Substance: BETAMETHASONE VALERATE
     Indication: Product used for unknown indication
  10. PROTOPIC [Concomitant]
     Active Substance: TACROLIMUS
     Indication: Product used for unknown indication

REACTIONS (5)
  - Vascular graft [Unknown]
  - Poor quality sleep [Recovered/Resolved]
  - Feeling abnormal [Recovered/Resolved]
  - Psoriasis [Recovering/Resolving]
  - Drug interaction [Unknown]

NARRATIVE: CASE EVENT DATE: 20201201
